FAERS Safety Report 10233352 (Version 1)
Quarter: 2014Q2

REPORT INFORMATION
  Report Type: Spontaneous
  Country: US (occurrence: US)
  Receive Date: 20140612
  Receipt Date: 20140612
  Transmission Date: 20141212
  Serious: Yes (Hospitalization)
  Sender: FDA-Public Use
  Company Number: US-SHIRE-US201402791

PATIENT
  Sex: 0

DRUGS (2)
  1. CINRYZE [Suspect]
     Indication: HEREDITARY ANGIOEDEMA
     Dosage: UNK, UNKNOWN
     Route: 042
  2. CINRYZE [Suspect]
     Indication: PROPHYLAXIS

REACTIONS (1)
  - Hospitalisation [Not Recovered/Not Resolved]
